FAERS Safety Report 5963130-9 (Version None)
Quarter: 2008Q4

REPORT INFORMATION
  Report Type: 
  Country: None (occurrence: None)
  Receive Date: 20081124
  Receipt Date: 20081112
  Transmission Date: 20090506
  Serious: Yes (Life-Threatening, Hospitalization)
  Sender: FDA-Public Use
  Company Number: US-ELI_LILLY_AND_COMPANY-US200806006455

PATIENT
  Sex: Male
  Weight: 49.9 kg

DRUGS (15)
  1. PEMETREXED [Suspect]
     Indication: HEAD AND NECK CANCER
     Dosage: 500 MG/M2, OTHER
     Route: 042
     Dates: start: 20080529, end: 20080619
  2. CISPLATIN [Suspect]
     Indication: HEAD AND NECK CANCER
     Dosage: 75 MG/M2, OTHER
     Route: 042
     Dates: start: 20080529, end: 20080619
  3. FOLIC ACID [Concomitant]
     Indication: SUPPLEMENTATION THERAPY
     Dosage: 400 MG, DAILY (1/D)
     Route: 048
     Dates: start: 20070101
  4. VITAMIN B-12 [Concomitant]
     Indication: SUPPLEMENTATION THERAPY
     Dosage: 1000 MG, OTHER
     Route: 030
     Dates: start: 20080521
  5. DEXAMETHASONE 0.5MG TAB [Concomitant]
     Indication: SUPPLEMENTATION THERAPY
     Dosage: 4 MG, 2/D
     Route: 048
     Dates: start: 20080618
  6. AMLODIPINE [Concomitant]
     Indication: HYPERTENSION
     Dates: start: 20070101
  7. LORAZEPAM [Concomitant]
     Indication: NAUSEA
     Dosage: 0.5 MG/KG, AS NEEDED
     Route: 048
     Dates: start: 20080606
  8. PROCHLORPERAZINE [Concomitant]
     Indication: NAUSEA
     Dosage: 10 MG, AS NEEDED
     Route: 048
     Dates: start: 20080604
  9. FENTANYL [Concomitant]
     Indication: NECK PAIN
     Dosage: 50 UG, QOD
     Dates: start: 20080529
  10. LORTAB [Concomitant]
     Indication: NECK PAIN
     Dosage: 15 ML, AS NEEDED
     Dates: start: 20080201
  11. MARINOL [Concomitant]
     Indication: NAUSEA
     Dosage: 2.5 MG, 2/D
     Dates: start: 20080619
  12. METOPROLOL [Concomitant]
     Indication: HYPERTENSION
     Dates: start: 20060630
  13. OMEPRAZOLE [Concomitant]
     Indication: GASTROOESOPHAGEAL REFLUX DISEASE
     Dosage: 20 MG, DAILY (1/D)
     Dates: start: 20060630
  14. ONDANSETRON [Concomitant]
     Dosage: 8 MG, AS NEEDED
     Dates: start: 20080604
  15. ZOLOFT [Concomitant]
     Indication: PROPHYLAXIS
     Dosage: 100 MG, DAILY (1/D)
     Dates: start: 20070101

REACTIONS (10)
  - BACTEROIDES INFECTION [None]
  - CULTURE POSITIVE [None]
  - DUODENAL ULCER PERFORATION [None]
  - FUNGAL INFECTION [None]
  - ISCHAEMIA [None]
  - KLEBSIELLA INFECTION [None]
  - NAUSEA [None]
  - PANCYTOPENIA [None]
  - STREPTOCOCCAL INFECTION [None]
  - VOMITING [None]
